FAERS Safety Report 11403338 (Version 1)
Quarter: 2015Q3

REPORT INFORMATION
  Report Type: Spontaneous
  Country: US (occurrence: US)
  Receive Date: 20150821
  Receipt Date: 20150821
  Transmission Date: 20151125
  Serious: No
  Sender: FDA-Public Use
  Company Number: US-TEVA-544539USA

PATIENT
  Age: 10 Year
  Sex: Female

DRUGS (4)
  1. CLONIDINE. [Suspect]
     Active Substance: CLONIDINE
     Indication: PSYCHOMOTOR HYPERACTIVITY
     Route: 062
     Dates: start: 201409, end: 20150122
  2. CLONIDINE. [Suspect]
     Active Substance: CLONIDINE
     Indication: INSOMNIA
  3. TRILEPTAL [Concomitant]
     Active Substance: OXCARBAZEPINE
     Indication: SEIZURE
  4. CLONIDINE. [Suspect]
     Active Substance: CLONIDINE
     Indication: ATTENTION DEFICIT/HYPERACTIVITY DISORDER

REACTIONS (5)
  - Product use issue [Unknown]
  - Agitation [Recovered/Resolved]
  - Insomnia [Recovered/Resolved]
  - Aggression [Unknown]
  - Somnolence [Unknown]

NARRATIVE: CASE EVENT DATE: 20150108
